FAERS Safety Report 5013687-X (Version None)
Quarter: 2006Q2

REPORT INFORMATION
  Report Type: 
  Country: None (occurrence: None)
  Receive Date: 20060525
  Receipt Date: 20060518
  Transmission Date: 20061013
  Serious: Yes (Hospitalization)
  Sender: FDA-Public Use
  Company Number: 163-21880-06040817

PATIENT
  Age: 80 Year
  Sex: Male

DRUGS (12)
  1. REVLIMID [Suspect]
     Indication: MYELODYSPLASTIC SYNDROME
     Dosage: 10 MG, DAILY, ORAL
     Route: 048
     Dates: start: 20060330, end: 20060428
  2. PRILOSEC [Concomitant]
  3. UROXATRAL [Concomitant]
  4. LANOXIN [Concomitant]
  5. LISINOPRIL [Concomitant]
  6. LOPID [Concomitant]
  7. GLYBURIDE [Concomitant]
  8. PLENDIL [Concomitant]
  9. RANIDURA (RANITIDINE HYDROCHLORIDE) [Concomitant]
  10. ALLOPURINOL [Concomitant]
  11. FERROUS SULFATE TAB [Concomitant]
  12. PROCRIT [Concomitant]

REACTIONS (8)
  - BONE MARROW FAILURE [None]
  - EPISTAXIS [None]
  - HEPATOMEGALY [None]
  - HYPERSPLENISM [None]
  - LEUKOPENIA [None]
  - PURPURA [None]
  - SPLENOMEGALY [None]
  - THROMBOCYTOPENIA [None]
